FAERS Safety Report 8765712 (Version 1)
Quarter: 2012Q4

REPORT INFORMATION
  Report Type: 
  Country: US (occurrence: US)
  Receive Date: 20120904
  Receipt Date: 20120904
  Transmission Date: 20130627
  Serious: No
  Sender: FDA-Public Use
  Company Number: US-PFIZER INC-2012213140

PATIENT
  Age: 80 Year

DRUGS (1)
  1. TOVIAZ [Suspect]
     Indication: NOCTURIA
     Dosage: 4 mg, UNK
     Dates: start: 20120509

REACTIONS (2)
  - Drug ineffective [Unknown]
  - Dry mouth [Unknown]
